FAERS Safety Report 5485537-9 (Version None)
Quarter: 2007Q4

REPORT INFORMATION
  Report Type: 
  Country: None (occurrence: None)
  Receive Date: 20071011
  Receipt Date: 20071001
  Transmission Date: 20080405
  Serious: Yes (Other)
  Sender: FDA-Public Use
  Company Number: CHNY2007GB01385

PATIENT
  Age: 61 Year
  Sex: Female

DRUGS (10)
  1. NICOTINE [Suspect]
     Indication: SMOKING CESSATION THERAPY
     Dosage: 21 MG, QD, TRANSDERMAL
     Route: 062
     Dates: end: 20070322
  2. NICOTINE [Suspect]
     Indication: SMOKING CESSATION THERAPY
     Dosage: 21 MG, QD, TRANSDERMAL
     Route: 062
     Dates: start: 20070309
  3. METHOTREXATE [Concomitant]
  4. FOLIC ACID [Concomitant]
  5. SULFASALAZINE [Concomitant]
  6. ZOTON (LANSOPRAZOLE) [Concomitant]
  7. SELDINAC [Concomitant]
  8. LANZOPRAZOL (LANSOPRAZOLE) [Concomitant]
  9. ATENOLOL [Concomitant]
  10. ASPIRIN [Concomitant]

REACTIONS (13)
  - APRAXIA [None]
  - ARTHRALGIA [None]
  - ASTHENIA [None]
  - CONCOMITANT DISEASE AGGRAVATED [None]
  - CONSTIPATION [None]
  - DYSPEPSIA [None]
  - FATIGUE [None]
  - FEELING ABNORMAL [None]
  - GAIT DISTURBANCE [None]
  - INFLUENZA LIKE ILLNESS [None]
  - JOINT STIFFNESS [None]
  - MALAISE [None]
  - MUSCULOSKELETAL STIFFNESS [None]
